FAERS Safety Report 8198978-6 (Version None)
Quarter: 2012Q1

REPORT INFORMATION
  Report Type: 
  Country: None (occurrence: None)
  Receive Date: 20120309
  Receipt Date: 20120305
  Transmission Date: 20120608
  Serious: Yes (Hospitalization, Other)
  Sender: FDA-Public Use
  Company Number: US-BAYER-2011-021319

PATIENT
  Age: 20 Year
  Sex: Female
  Weight: 40.363 kg

DRUGS (8)
  1. ATENOLOL [Concomitant]
     Indication: HEART RATE IRREGULAR
     Dosage: 25 MG, QD
     Route: 048
     Dates: start: 20050101
  2. XOPENEX [Concomitant]
     Dosage: UNK UNK, PRN
     Dates: start: 20070601
  3. ALBUTEROL [Concomitant]
     Dosage: UNK UNK, PRN
     Dates: start: 20070601
  4. YAZ [Suspect]
     Indication: CONTRACEPTION
     Dosage: UNK
     Route: 048
     Dates: start: 20070501, end: 20070901
  5. PRILOSEC [Concomitant]
  6. TORADOL [Concomitant]
     Dosage: UNK UNK, PRN
  7. NAPROXEN [Concomitant]
     Dosage: UNK
     Dates: start: 20070801
  8. ADVAIR DISKUS 100/50 [Concomitant]
     Dosage: UNK UNK, PRN

REACTIONS (5)
  - DEEP VEIN THROMBOSIS [None]
  - INJURY [None]
  - ABDOMINAL PAIN [None]
  - MESENTERIC VEIN THROMBOSIS [None]
  - PORTAL VEIN THROMBOSIS [None]
